FAERS Safety Report 20524742 (Version 7)
Quarter: 2022Q3

REPORT INFORMATION
  Report Type: Report from Study
  Country: US (occurrence: US)
  Receive Date: 20220228
  Receipt Date: 20220630
  Transmission Date: 20221027
  Serious: Yes (Other)
  Sender: FDA-Public Use
  Company Number: US-NOVARTISTESTPH-NVSC2022US044482

PATIENT
  Sex: Female
  Weight: 79.37 kg

DRUGS (7)
  1. TREPROSTINIL [Suspect]
     Active Substance: TREPROSTINIL
     Indication: Pulmonary arterial hypertension
     Dosage: 31.3 NG/KG/MIN CONT
     Route: 058
     Dates: start: 20210615
  2. TREPROSTINIL [Suspect]
     Active Substance: TREPROSTINIL
     Dosage: 39.3(NG/KG/MIN) CONT
     Route: 058
     Dates: start: 20210615
  3. TREPROSTINIL [Suspect]
     Active Substance: TREPROSTINIL
     Dosage: UNK
     Route: 065
  4. REMODULIN [Suspect]
     Active Substance: TREPROSTINIL
     Indication: Product used for unknown indication
     Dosage: UNK (47.9 NG/KG/MIN)
     Route: 058
  5. VELETRI [Suspect]
     Active Substance: EPOPROSTENOL
     Indication: Product used for unknown indication
     Dosage: UNK
     Route: 065
  6. VELETRI [Suspect]
     Active Substance: EPOPROSTENOL
     Dosage: UNK
     Route: 065
  7. SILDENAFIL CITRATE [Concomitant]
     Active Substance: SILDENAFIL CITRATE
     Indication: Product used for unknown indication
     Dosage: UNK
     Route: 065

REACTIONS (8)
  - Pulmonary hypertension [Unknown]
  - Dyspnoea [Unknown]
  - Cardiac output decreased [Unknown]
  - Diarrhoea [Recovering/Resolving]
  - Arthralgia [Unknown]
  - Decreased appetite [Unknown]
  - Hypotension [Recovering/Resolving]
  - Nausea [Recovering/Resolving]
